FAERS Safety Report 5862754-7 (Version None)
Quarter: 2008Q3

REPORT INFORMATION
  Report Type: 
  Country: None (occurrence: None)
  Receive Date: 20080827
  Receipt Date: 20080827
  Transmission Date: 20090109
  Serious: Yes (Other)
  Sender: FDA-Public Use
  Company Number: None

PATIENT
  Age: 46 Year
  Sex: Female
  Weight: 106.5953 kg

DRUGS (1)
  1. BYSTOLIC [Suspect]
     Indication: TACHYCARDIA
     Dosage: 5MG ONCE PER DAY PO
     Route: 048
     Dates: start: 20080815, end: 20080822

REACTIONS (1)
  - DEPRESSION [None]
